FAERS Safety Report 5345633-3 (Version None)
Quarter: 2007Q2

REPORT INFORMATION
  Report Type: 
  Country: None (occurrence: None)
  Receive Date: 20070605
  Receipt Date: 20061120
  Transmission Date: 20071010
  Serious: Yes (Other)
  Sender: FDA-Public Use
  Company Number: US-ASTRAZENECA-2006AC02167

PATIENT
  Age: 44 Year
  Sex: Female

DRUGS (2)
  1. OMEPRAZOLE [Suspect]
  2. OMEPRAZOLE [Suspect]
     Dosage: OCCASIONAL USE

REACTIONS (1)
  - GASTRIC POLYPS [None]
